FAERS Safety Report 12460864 (Version 2)
Quarter: 2016Q2

REPORT INFORMATION
  Report Type: Spontaneous
  Country: US (occurrence: US)
  Receive Date: 20160613
  Receipt Date: 20160617
  Transmission Date: 20160815
  Serious: Yes (Hospitalization)
  Sender: FDA-Public Use
  Company Number: US-SA-2016SA109795

PATIENT
  Age: 24 Year
  Sex: Female

DRUGS (10)
  1. MIDAZOLAM [Suspect]
     Active Substance: MIDAZOLAM\MIDAZOLAM HYDROCHLORIDE
     Indication: ANAESTHESIA
     Route: 042
  2. IBUPROFEN. [Suspect]
     Active Substance: IBUPROFEN
     Route: 065
  3. RHOGAM [Suspect]
     Active Substance: HUMAN RHO(D) IMMUNE GLOBULIN
     Route: 065
  4. EPINEPHRINE. [Suspect]
     Active Substance: EPINEPHRINE
     Indication: KOUNIS SYNDROME
     Dosage: 1:1000
     Route: 030
  5. FENTANYL. [Suspect]
     Active Substance: FENTANYL
     Indication: ANAESTHESIA
     Route: 042
  6. EPINEPHRINE. [Suspect]
     Active Substance: EPINEPHRINE
     Indication: ANAPHYLACTIC REACTION
     Route: 065
  7. EPINEPHRINE. [Suspect]
     Active Substance: EPINEPHRINE
     Indication: ANAPHYLACTIC REACTION
     Dosage: 1:1000
     Route: 030
  8. AZITHROMYCIN ANHYDROUS. [Suspect]
     Active Substance: AZITHROMYCIN ANHYDROUS
     Route: 065
  9. EPINEPHRINE. [Suspect]
     Active Substance: EPINEPHRINE
     Indication: KOUNIS SYNDROME
     Route: 065
  10. NICOTINE. [Suspect]
     Active Substance: NICOTINE
     Route: 065

REACTIONS (16)
  - Heart rate increased [Recovered/Resolved]
  - Thunderclap headache [Recovered/Resolved]
  - Blood lactic acid increased [Recovered/Resolved]
  - Electrocardiogram abnormal [Recovered/Resolved]
  - Anaphylactic reaction [Recovered/Resolved]
  - Kounis syndrome [Recovered/Resolved]
  - Nicotine dependence [Unknown]
  - Lactic acidosis [Recovered/Resolved]
  - Paraesthesia [Recovered/Resolved]
  - Troponin increased [Recovered/Resolved]
  - Fibrin D dimer increased [Recovered/Resolved]
  - Reversible cerebral vasoconstriction syndrome [Recovered/Resolved]
  - Chest pain [Recovered/Resolved]
  - Nuclear magnetic resonance imaging brain abnormal [Recovered/Resolved]
  - Blood pressure decreased [Recovered/Resolved]
  - Arteriospasm coronary [Recovered/Resolved]
